FAERS Safety Report 11788304 (Version 1)
Quarter: 2015Q4

REPORT INFORMATION
  Report Type: Spontaneous
  Country: US (occurrence: US)
  Receive Date: 20151201
  Receipt Date: 20151201
  Transmission Date: 20160305
  Serious: No
  Sender: FDA-Public Use
  Company Number: US-ELI_LILLY_AND_COMPANY-US201511006568

PATIENT
  Age: 83 Year
  Sex: Female

DRUGS (16)
  1. FORTEO [Suspect]
     Active Substance: TERIPARATIDE
     Indication: BONE DISORDER
     Dosage: UNK, QD
     Route: 065
     Dates: start: 201508
  2. PRESERVISION [Concomitant]
     Active Substance: MINERALS\VITAMINS
  3. CYMBALTA [Concomitant]
     Active Substance: DULOXETINE HYDROCHLORIDE
  4. LASIX [Concomitant]
     Active Substance: FUROSEMIDE
  5. CALCITRATE [Concomitant]
     Active Substance: CALCIUM CITRATE
  6. DONEPEZIL. [Concomitant]
     Active Substance: DONEPEZIL
  7. TRAMADOL. [Concomitant]
     Active Substance: TRAMADOL
  8. TAMULOSIN [Concomitant]
     Active Substance: TAMSULOSIN
  9. MONTELUKAST [Concomitant]
     Active Substance: MONTELUKAST SODIUM
  10. VITAMIN D3 [Concomitant]
     Active Substance: CHOLECALCIFEROL
  11. FOLIC ACID. [Concomitant]
     Active Substance: FOLIC ACID
  12. OXYCODONE [Concomitant]
     Active Substance: OXYCODONE
  13. GABAPENTIN. [Concomitant]
     Active Substance: GABAPENTIN
  14. PHENOBARBITAL. [Concomitant]
     Active Substance: PHENOBARBITAL
  15. METOPROLOL                         /00376902/ [Concomitant]
     Active Substance: METOPROLOL
  16. BIOTIN                             /08249501/ [Concomitant]

REACTIONS (7)
  - Fatigue [Not Recovered/Not Resolved]
  - Constipation [Not Recovered/Not Resolved]
  - Haemorrhage [Not Recovered/Not Resolved]
  - Haemorrhoids [Not Recovered/Not Resolved]
  - Back pain [Not Recovered/Not Resolved]
  - Pain in extremity [Recovering/Resolving]
  - Somnolence [Not Recovered/Not Resolved]

NARRATIVE: CASE EVENT DATE: 20151115
